FAERS Safety Report 11271671 (Version 3)
Quarter: 2015Q3

REPORT INFORMATION
  Report Type: Report from Study
  Country: JP (occurrence: JP)
  Receive Date: 20150715
  Receipt Date: 20150729
  Transmission Date: 20151125
  Serious: Yes (Hospitalization)
  Sender: FDA-Public Use
  Company Number: JP-ROCHE-1606703

PATIENT
  Age: 61 Year
  Sex: Male
  Weight: 108 kg

DRUGS (13)
  1. KIKLIN [Concomitant]
     Active Substance: BIXALOMER
     Indication: DIABETIC NEPHROPATHY
     Route: 048
  2. PRECIPITATED CALCIUM CARBONATE [Concomitant]
     Active Substance: CALCIUM CARBONATE
     Indication: DIABETIC NEPHROPATHY
     Route: 048
  3. FESIN (JAPAN) [Concomitant]
     Active Substance: IRON SUCROSE
     Indication: IRON DEFICIENCY
     Route: 042
     Dates: start: 20150519
  4. NICORANDIL [Concomitant]
     Active Substance: NICORANDIL
     Indication: ANGINA PECTORIS
     Route: 048
  5. CRESTOR [Concomitant]
     Active Substance: ROSUVASTATIN CALCIUM
     Indication: HYPERCHOLESTEROLAEMIA
     Route: 048
  6. OXAROL [Concomitant]
     Active Substance: MAXACALCITOL
     Indication: DIABETIC NEPHROPATHY
     Route: 042
  7. OMEPRAZOLE. [Concomitant]
     Active Substance: OMEPRAZOLE
     Indication: GASTROOESOPHAGEAL REFLUX DISEASE
     Route: 048
  8. FOSRENOL [Concomitant]
     Active Substance: LANTHANUM CARBONATE
     Indication: DIABETIC NEPHROPATHY
     Route: 048
  9. CARDENALIN [Concomitant]
     Active Substance: DOXAZOSIN MESYLATE
     Indication: HYPERTENSION
     Route: 048
  10. ARTIST [Concomitant]
     Active Substance: CARVEDILOL
     Indication: ANGINA PECTORIS
     Route: 048
  11. METHYCOBAL [Concomitant]
     Active Substance: METHYLCOBALAMIN
     Indication: DIABETIC NEUROPATHY
     Route: 048
  12. VITAMIN E [Concomitant]
     Active Substance: .ALPHA.-TOCOPHEROL
     Indication: DIABETIC NEUROPATHY
     Route: 048
  13. METHOXY POLYETHYLENE GLYCOL-EPOETIN BETA [Suspect]
     Active Substance: METHOXY POLYETHYLENE GLYCOL-EPOETIN BETA
     Indication: NEPHROGENIC ANAEMIA
     Route: 042
     Dates: start: 20150302

REACTIONS (2)
  - Cholangitis [Recovered/Resolved]
  - Bile duct stone [Recovered/Resolved]

NARRATIVE: CASE EVENT DATE: 201507
